FAERS Safety Report 5126365-3 (Version None)
Quarter: 2006Q4

REPORT INFORMATION
  Report Type: 
  Country: None (occurrence: None)
  Receive Date: 20061010
  Receipt Date: 20060927
  Transmission Date: 20070319
  Serious: Yes (Death)
  Sender: FDA-Public Use
  Company Number: 06H-163-0310515-00

PATIENT
  Age: 31 Year
  Sex: Female

DRUGS (5)
  1. DIPHENHYDRAMINE HCL [Suspect]
  2. PROPOXYPHENE HCL [Suspect]
  3. ALPRAZOLAM [Suspect]
  4. FLURAZEPAM [Suspect]
  5. QUETIAPINE FUMARATE [Suspect]

REACTIONS (4)
  - COMPLETED SUICIDE [None]
  - DRUG TOXICITY [None]
  - HEPATIC STEATOSIS [None]
  - PULMONARY CONGESTION [None]
